FAERS Safety Report 15428657 (Version 2)
Quarter: 2018Q3

REPORT INFORMATION
  Report Type: Spontaneous
  Country: IT (occurrence: IT)
  Receive Date: 20180926
  Receipt Date: 20180927
  Transmission Date: 20181010
  Serious: Yes (Hospitalization)
  Sender: FDA-Public Use
  Company Number: IT-009507513-1809ITA007561

PATIENT
  Age: 3 Year
  Sex: Male

DRUGS (5)
  1. CEFACLOR. [Suspect]
     Active Substance: CEFACLOR
     Indication: EAR INFECTION
     Dosage: UNK
  2. CLARITHROMYCIN. [Suspect]
     Active Substance: CLARITHROMYCIN
     Indication: EAR INFECTION
     Dosage: UNK
  3. BETAMETHASONE DIPROPIONATE. [Suspect]
     Active Substance: BETAMETHASONE DIPROPIONATE
     Indication: EAR INFECTION
     Dosage: UNK
  4. MORNIFLUMATE [Suspect]
     Active Substance: MORNIFLUMATE
     Indication: EAR INFECTION
     Dosage: UNK
  5. ACETAMINOPHEN. [Suspect]
     Active Substance: ACETAMINOPHEN
     Indication: EAR INFECTION
     Dosage: UNK

REACTIONS (1)
  - Urticaria [Unknown]
